FAERS Safety Report 10621715 (Version 2)
Quarter: 2014Q4

REPORT INFORMATION
  Report Type: Report from Study
  Country: CA (occurrence: CA)
  Receive Date: 20141203
  Receipt Date: 20141203
  Transmission Date: 20150529
  Serious: Yes (Other)
  Sender: FDA-Public Use
  Company Number: PHHY2014CA002730

PATIENT
  Sex: Female
  Weight: 70.3 kg

DRUGS (4)
  1. TECFIDERA [Suspect]
     Active Substance: DIMETHYL FUMARATE
     Dosage: 2 DF, BID, 2 PILLS AT ONCE BID
     Route: 065
     Dates: end: 20141110
  2. EXTAVIA [Suspect]
     Active Substance: INTERFERON BETA-1B
     Indication: SECONDARY PROGRESSIVE MULTIPLE SCLEROSIS
     Dosage: 8 MIU, QW3
     Route: 058
     Dates: start: 20131004, end: 201410
  3. TECFIDERA [Suspect]
     Active Substance: DIMETHYL FUMARATE
     Indication: PRODUCT USED FOR UNKNOWN INDICATION
     Dosage: 1 DF, QD, 1 PILL DAILY
     Route: 065
     Dates: start: 201410
  4. EXTAVIA [Suspect]
     Active Substance: INTERFERON BETA-1B
     Dosage: UNK
     Route: 058
     Dates: start: 20141112

REACTIONS (9)
  - Vomiting [Unknown]
  - Homicidal ideation [Recovering/Resolving]
  - Abnormal behaviour [Unknown]
  - Personality change [Recovering/Resolving]
  - Gait disturbance [Unknown]
  - Somnolence [Recovering/Resolving]
  - Injection site pain [Unknown]
  - Hot flush [Unknown]
  - Insomnia [Recovering/Resolving]
